FAERS Safety Report 10029307 (Version 1)
Quarter: 2014Q1

REPORT INFORMATION
  Report Type: Spontaneous
  Country: FR (occurrence: FR)
  Receive Date: 20140321
  Receipt Date: 20140321
  Transmission Date: 20141002
  Serious: Yes (Hospitalization)
  Sender: FDA-Public Use
  Company Number: PHHY2014FR031973

PATIENT
  Sex: Female

DRUGS (3)
  1. AFINITOR [Suspect]
     Indication: BREAST CANCER
     Dosage: 10 MG, UNK
  2. AFINITOR [Suspect]
     Dosage: 5 MG, UNK
  3. EXEMESTANE [Concomitant]
     Indication: BREAST CANCER

REACTIONS (2)
  - General physical health deterioration [Not Recovered/Not Resolved]
  - Renal failure acute [Not Recovered/Not Resolved]
